FAERS Safety Report 8814056 (Version 2)
Quarter: 2013Q3

REPORT INFORMATION
  Report Type: Spontaneous
  Country: US (occurrence: US)
  Receive Date: 20120928
  Receipt Date: 20130715
  Transmission Date: 20140515
  Serious: Yes (Hospitalization, Other)
  Sender: FDA-Public Use
  Company Number: US-PFIZER INC-2012239778

PATIENT
  Age: 55 Year
  Sex: Female
  Weight: 86.17 kg

DRUGS (4)
  1. NEURONTIN [Suspect]
     Indication: NERVE INJURY
     Dosage: 1200 MG (TWO 600MG TABLETS), 3X/DAY
     Route: 048
     Dates: start: 2003
  2. NEURONTIN [Suspect]
     Indication: INTERVERTEBRAL DISC PROTRUSION
  3. NEURONTIN [Suspect]
     Indication: NEURALGIA
  4. OXYCODONE [Concomitant]
     Indication: PAIN
     Dosage: 50 MG, EVERY 4 HRS

REACTIONS (4)
  - Abdominal pain [Unknown]
  - Gastrointestinal disorder [Unknown]
  - Aphonia [Unknown]
  - Gastrooesophageal reflux disease [Unknown]
